FAERS Safety Report 5782419-X (Version None)
Quarter: 2008Q2

REPORT INFORMATION
  Report Type: 
  Country: None (occurrence: None)
  Receive Date: 20080618
  Receipt Date: 20080609
  Transmission Date: 20081010
  Serious: Yes (Death, Hospitalization)
  Sender: FDA-Public Use
  Company Number: E2020-02750-SPO-JP

PATIENT
  Age: 71 Year
  Sex: Male

DRUGS (4)
  1. ARICEPT [Suspect]
     Indication: DEMENTIA ALZHEIMER'S TYPE
     Dosage: 3 MG, 1 IN 1 D, ORAL
     Route: 048
     Dates: start: 20080424, end: 20080428
  2. RISPERDAL [Suspect]
     Indication: SCHIZOPHRENIA
     Dosage: 1 MG, 2 IN 1 D, ORAL, 1.5 MG, 1 IN 1 D, ORAL
     Route: 048
     Dates: start: 20080415, end: 20080424
  3. RISPERDAL [Suspect]
     Indication: SCHIZOPHRENIA
     Dosage: 1 MG, 2 IN 1 D, ORAL, 1.5 MG, 1 IN 1 D, ORAL
     Route: 048
     Dates: start: 20080425, end: 20080428
  4. HALCION [Concomitant]

REACTIONS (19)
  - ABASIA [None]
  - ANOREXIA [None]
  - BLOOD CALCIUM INCREASED [None]
  - BODY TEMPERATURE INCREASED [None]
  - CONTUSION [None]
  - DELIRIUM [None]
  - DEPRESSED LEVEL OF CONSCIOUSNESS [None]
  - EARLY MORNING AWAKENING [None]
  - EXTRAPYRAMIDAL DISORDER [None]
  - FALL [None]
  - FATIGUE [None]
  - GENERAL PHYSICAL CONDITION ABNORMAL [None]
  - HEAD INJURY [None]
  - HYDROCEPHALUS [None]
  - INSOMNIA [None]
  - PNEUMONIA [None]
  - RENAL IMPAIRMENT [None]
  - SOMNOLENCE [None]
  - SUBDURAL HAEMATOMA [None]
